FAERS Safety Report 12573157 (Version 1)
Quarter: 2016Q3

REPORT INFORMATION
  Report Type: Spontaneous
  Country: US (occurrence: None)
  Receive Date: 20160719
  Receipt Date: 20160719
  Transmission Date: 20161109
  Serious: Yes (Hospitalization)
  Sender: FDA-Public Use
  Company Number: None

PATIENT
  Age: 77 Year
  Sex: Female
  Weight: 74.84 kg

DRUGS (11)
  1. GLUCOPHAGE [Concomitant]
     Active Substance: METFORMIN HYDROCHLORIDE
  2. NITROSTAT [Concomitant]
     Active Substance: NITROGLYCERIN
  3. AVASTIN [Suspect]
     Active Substance: BEVACIZUMAB
     Indication: MACULAR DEGENERATION
     Dosage: INJECTION EVERY 10-12 WEEKS INJECTION
     Dates: end: 20091130
  4. JARDIANCE [Concomitant]
     Active Substance: EMPAGLIFLOZIN
  5. METOPROIAL [Concomitant]
  6. LIPITOR [Concomitant]
     Active Substance: ATORVASTATIN CALCIUM
  7. ONE-A-DAY NOS [Concomitant]
     Active Substance: MINERALS\VITAMINS
  8. SYNTHROID [Concomitant]
     Active Substance: LEVOTHYROXINE SODIUM
  9. ASPRIN [Concomitant]
     Active Substance: ASPIRIN
  10. VALIUM [Concomitant]
     Active Substance: DIAZEPAM
  11. FISH OIL [Concomitant]
     Active Substance: FISH OIL

REACTIONS (4)
  - Hypotension [None]
  - Eye pain [None]
  - Eye irritation [None]
  - Visual impairment [None]

NARRATIVE: CASE EVENT DATE: 20091103
